FAERS Safety Report 6425281-4 (Version None)
Quarter: 2009Q4

REPORT INFORMATION
  Report Type: 
  Country: None (occurrence: None)
  Receive Date: 20091103
  Receipt Date: 20091026
  Transmission Date: 20100525
  Serious: Yes (Other)
  Sender: FDA-Public Use
  Company Number: US-KINGPHARMUSA00001-K200901326

PATIENT
  Age: 55 Year
  Sex: Female

DRUGS (11)
  1. ALTACE [Suspect]
     Indication: ESSENTIAL HYPERTENSION
     Dosage: 10 MG, QD
     Route: 048
     Dates: start: 20080728
  2. HYDROCHLOROTHIAZIDE [Suspect]
  3. PREDNISONE TAB [Concomitant]
  4. AMLODIPINE [Concomitant]
  5. NORMAL SALINE [Concomitant]
  6. FENTANYL-100 [Concomitant]
  7. IPRATROPIUM [Concomitant]
  8. MIDAZOLAM HCL [Concomitant]
  9. OXYGEN [Concomitant]
  10. LISINOPRIL [Concomitant]
  11. ALBUTEROL [Concomitant]

REACTIONS (3)
  - COLON ADENOMA [None]
  - COLONIC POLYP [None]
  - DIVERTICULUM [None]
